FAERS Safety Report 21383911 (Version 1)
Quarter: 2022Q3

REPORT INFORMATION
  Report Type: Report from Study
  Country: DE (occurrence: DE)
  Receive Date: 20220928
  Receipt Date: 20220928
  Transmission Date: 20221026
  Serious: Yes (Death, Hospitalization)
  Sender: FDA-Public Use
  Company Number: DE-MYLANLABS-2022M1083453

PATIENT
  Age: 65 Year
  Sex: Male

DRUGS (44)
  1. METHOTREXATE [Suspect]
     Active Substance: METHOTREXATE
     Indication: Rheumatoid arthritis
     Dosage: UNIT DOSE : 22.5 MILLIGRAM ,  THERAPY END DATE : ASKU
     Dates: start: 20111108
  2. METHOTREXATE [Suspect]
     Active Substance: METHOTREXATE
     Dosage: UNIT DOSE : 22.5 MILLIGRAM ,  THERAPY END DATE : ASKU
     Dates: start: 20110608
  3. METHOTREXATE [Suspect]
     Active Substance: METHOTREXATE
     Dosage: UNIT DOSE : 22.5 MILLIGRAM ,  THERAPY END DATE : ASKU
     Dates: start: 20121106
  4. METHOTREXATE [Suspect]
     Active Substance: METHOTREXATE
     Dosage: UNIT DOSE : 22.5 MILLIGRAM ,  THERAPY END DATE : ASKU
     Dates: start: 20160414
  5. METHOTREXATE [Suspect]
     Active Substance: METHOTREXATE
     Dosage: UNIT DOSE : 22.5 MILLIGRAM ,  THERAPY END DATE : ASKU
     Dates: start: 20120509
  6. METHOTREXATE [Suspect]
     Active Substance: METHOTREXATE
     Dosage: UNIT DOSE : 22.5 MILLIGRAM ,  THERAPY END DATE : ASKU
     Dates: start: 20170511
  7. METHOTREXATE [Suspect]
     Active Substance: METHOTREXATE
     Dosage: UNIT DOSE : 20 MILLIGRAM ,  THERAPY END DATE : ASKU
     Dates: start: 20181107
  8. METHOTREXATE [Suspect]
     Active Substance: METHOTREXATE
     Dosage: UNIT DOSE : 22.5 MILLIGRAM ,  THERAPY END DATE : ASKU
     Dates: start: 20161107
  9. METHOTREXATE [Suspect]
     Active Substance: METHOTREXATE
     Dosage: UNIT DOSE : 20 MILLIGRAM ,  THERAPY END DATE : ASKU
     Dates: start: 20171211
  10. METHOTREXATE [Suspect]
     Active Substance: METHOTREXATE
     Dosage: UNIT DOSE : 22.5 MILLIGRAM ,  THERAPY END DATE : ASKU
     Dates: start: 20090526
  11. METHOTREXATE [Suspect]
     Active Substance: METHOTREXATE
     Dosage: UNIT DOSE : 22.5 MILLIGRAM ,  THERAPY END DATE : ASKU
     Dates: start: 20090922
  12. METHOTREXATE [Suspect]
     Active Substance: METHOTREXATE
     Dosage: UNIT DOSE : 22.5 MILLIGRAM ,  THERAPY END DATE : ASKU
     Dates: start: 20091210
  13. METHOTREXATE [Suspect]
     Active Substance: METHOTREXATE
     Dosage: UNIT DOSE : 22.5 MILLIGRAM ,  THERAPY END DATE : ASKU
     Dates: start: 20100510
  14. METHOTREXATE [Suspect]
     Active Substance: METHOTREXATE
     Dosage: UNIT DOSE : 22.5 MILLIGRAM ,  THERAPY END DATE : ASKU
     Dates: start: 20140411
  15. METHOTREXATE [Suspect]
     Active Substance: METHOTREXATE
     Dosage: UNIT DOSE : 22.5 MILLIGRAM ,  THERAPY END DATE : ASKU
     Dates: start: 20150420
  16. METHOTREXATE [Suspect]
     Active Substance: METHOTREXATE
     Dosage: UNIT DOSE : 22.5 MILLIGRAM ,  THERAPY END DATE : ASKU
     Dates: start: 20130603
  17. METHOTREXATE [Suspect]
     Active Substance: METHOTREXATE
     Dosage: UNIT DOSE : 22.5 MILLIGRAM ,  THERAPY END DATE : ASKU
     Dates: start: 20151014
  18. METHOTREXATE [Suspect]
     Active Substance: METHOTREXATE
     Dosage: UNIT DOSE : 15 MILLIGRAM ,  THERAPY END DATE : ASKU
     Dates: start: 20110118
  19. METHOTREXATE [Suspect]
     Active Substance: METHOTREXATE
     Dosage: UNIT DOSE : 20 MILLIGRAM ,  THERAPY END DATE : ASKU
     Dates: start: 20180507
  20. METHOTREXATE [Suspect]
     Active Substance: METHOTREXATE
     Dosage: UNIT DOSE : 22.5 MILLIGRAM ,  THERAPY END DATE : ASKU
     Dates: start: 20131203
  21. LEFLUNOMIDE [Suspect]
     Active Substance: LEFLUNOMIDE
     Indication: Rheumatoid arthritis
     Dosage: UNIT DOSE : 10 MILLIGRAM ,  THERAPY END DATE : ASKU
     Dates: start: 20181107
  22. LEFLUNOMIDE [Suspect]
     Active Substance: LEFLUNOMIDE
     Dosage: UNIT DOSE : 10 MILLIGRAM ,  THERAPY END DATE : ASKU
     Dates: start: 20171211
  23. LEFLUNOMIDE [Suspect]
     Active Substance: LEFLUNOMIDE
     Dosage: UNIT DOSE : 10 MILLIGRAM ,  THERAPY END DATE : ASKU
     Dates: start: 20180507
  24. LEFLUNOMIDE [Suspect]
     Active Substance: LEFLUNOMIDE
     Dosage: UNIT DOSE : 10 MILLIGRAM ,  THERAPY END DATE : ASKU
     Dates: start: 20170511
  25. HYDROXYCHLOROQUINE [Suspect]
     Active Substance: HYDROXYCHLOROQUINE
     Indication: Rheumatoid arthritis
     Dosage: UNIT DOSE : 200 MILLIGRAM ,  THERAPY END DATE : ASKU
     Dates: start: 20130603
  26. HYDROXYCHLOROQUINE [Suspect]
     Active Substance: HYDROXYCHLOROQUINE
     Dosage: UNIT DOSE : 200 MILLIGRAM ,  THERAPY END DATE : ASKU
     Dates: start: 20091210
  27. HYDROXYCHLOROQUINE [Suspect]
     Active Substance: HYDROXYCHLOROQUINE
     Dosage: UNIT DOSE : 200 MILLIGRAM ,  THERAPY END DATE : ASKU
     Dates: start: 20100510
  28. HYDROXYCHLOROQUINE [Suspect]
     Active Substance: HYDROXYCHLOROQUINE
     Dosage: UNIT DOSE : 200 MILLIGRAM ,  THERAPY END DATE : ASKU
     Dates: start: 20170511
  29. HYDROXYCHLOROQUINE [Suspect]
     Active Substance: HYDROXYCHLOROQUINE
     Dosage: UNIT DOSE : 200 MILLIGRAM ,  THERAPY END DATE : ASKU
     Dates: start: 20110608
  30. HYDROXYCHLOROQUINE [Suspect]
     Active Substance: HYDROXYCHLOROQUINE
     Dosage: UNIT DOSE : 200 MILLIGRAM ,  THERAPY END DATE : ASKU
     Dates: start: 20140411
  31. HYDROXYCHLOROQUINE [Suspect]
     Active Substance: HYDROXYCHLOROQUINE
     Dosage: UNIT DOSE : 200 MILLIGRAM ,  THERAPY END DATE : ASKU
     Dates: start: 20110118
  32. HYDROXYCHLOROQUINE [Suspect]
     Active Substance: HYDROXYCHLOROQUINE
     Dosage: UNIT DOSE : 400 MILLIGRAM ,  THERAPY END DATE : ASKU
     Dates: start: 20090526
  33. HYDROXYCHLOROQUINE [Suspect]
     Active Substance: HYDROXYCHLOROQUINE
     Dosage: UNIT DOSE : 200 MILLIGRAM ,  THERAPY END DATE : ASKU
     Dates: start: 20150420
  34. HYDROXYCHLOROQUINE [Suspect]
     Active Substance: HYDROXYCHLOROQUINE
     Dosage: UNIT DOSE : 200 MILLIGRAM ,  THERAPY END DATE : ASKU
     Dates: start: 20161107
  35. HYDROXYCHLOROQUINE [Suspect]
     Active Substance: HYDROXYCHLOROQUINE
     Dosage: UNIT DOSE : 200 MILLIGRAM ,  THERAPY END DATE : ASKU
     Dates: start: 20160414
  36. HYDROXYCHLOROQUINE [Suspect]
     Active Substance: HYDROXYCHLOROQUINE
     Dosage: UNIT DOSE : 200 MILLIGRAM ,  THERAPY END DATE : ASKU
     Dates: start: 20131203
  37. HYDROXYCHLOROQUINE [Suspect]
     Active Substance: HYDROXYCHLOROQUINE
     Dosage: UNIT DOSE : 200 MILLIGRAM ,  THERAPY END DATE : ASKU
     Dates: start: 20090922
  38. HYDROXYCHLOROQUINE [Suspect]
     Active Substance: HYDROXYCHLOROQUINE
     Dosage: UNIT DOSE : 200 MILLIGRAM ,  THERAPY END DATE : ASKU
     Dates: start: 20111108
  39. HYDROXYCHLOROQUINE [Suspect]
     Active Substance: HYDROXYCHLOROQUINE
     Dosage: UNIT DOSE : 200 MILLIGRAM ,  THERAPY END DATE : ASKU
     Dates: start: 20151014
  40. HYDROXYCHLOROQUINE [Suspect]
     Active Substance: HYDROXYCHLOROQUINE
     Dosage: UNIT DOSE : 200 MILLIGRAM ,  THERAPY END DATE : ASKU
     Dates: start: 20120509
  41. HYDROXYCHLOROQUINE [Suspect]
     Active Substance: HYDROXYCHLOROQUINE
     Dosage: UNIT DOSE : 200 MILLIGRAM ,  THERAPY END DATE : ASKU
     Dates: start: 20121106
  42. METHOTREXATE SODIUM [Suspect]
     Active Substance: METHOTREXATE SODIUM
     Indication: Product used for unknown indication
     Dosage: UNIT DOSE : 20 MG, WEEKLY , FREQUENCY TIME : 1 WEEKS
  43. SULFASALAZINE [Suspect]
     Active Substance: SULFASALAZINE
     Indication: Rheumatoid arthritis
     Dosage: UNIT DOSE : 2000 MILLIGRAM ,  THERAPY END DATE : ASKU
     Dates: start: 20150420
  44. SULFASALAZINE [Suspect]
     Active Substance: SULFASALAZINE
     Dosage: UNIT DOSE : 2000 MILLIGRAM ,  THERAPY END DATE : ASKU
     Dates: start: 20140411

REACTIONS (2)
  - Empyema [Recovered/Resolved]
  - Small cell lung cancer metastatic [Fatal]

NARRATIVE: CASE EVENT DATE: 20170506
